FAERS Safety Report 9652855 (Version 2)
Quarter: 2014Q4

REPORT INFORMATION
  Report Type: Spontaneous
  Country: IT (occurrence: IT)
  Receive Date: 20131029
  Receipt Date: 20141203
  Transmission Date: 20150529
  Serious: Yes (Other)
  Sender: FDA-Public Use
  Company Number: IT-ALLERGAN-1316607US

PATIENT
  Age: 76 Year
  Sex: Female
  Weight: 50 kg

DRUGS (5)
  1. COSOPT [Concomitant]
     Active Substance: DORZOLAMIDE HYDROCHLORIDE\TIMOLOL MALEATE
     Dosage: UNK
     Route: 047
     Dates: start: 20130208, end: 20131101
  2. LUMIGAN [Suspect]
     Active Substance: BIMATOPROST
     Indication: GLAUCOMA
     Dosage: ONE DROP PER DAY
     Route: 047
     Dates: start: 20130208, end: 20131011
  3. TIMOLOL [Concomitant]
     Active Substance: TIMOLOL
     Route: 061
  4. CARBONIC ANHYDRASE INHIBITOR [Concomitant]
     Route: 061
  5. AZOPT [Concomitant]
     Active Substance: BRINZOLAMIDE
     Dosage: UNK
     Route: 047

REACTIONS (2)
  - Hypoacusis [Recovered/Resolved]
  - Deafness bilateral [None]

NARRATIVE: CASE EVENT DATE: 20130901
